FAERS Safety Report 9341325 (Version 1)
Quarter: 2013Q2

REPORT INFORMATION
  Report Type: Spontaneous
  Country: US (occurrence: None)
  Receive Date: 20130610
  Receipt Date: 20130610
  Transmission Date: 20140414
  Serious: Yes (Hospitalization, Disabling)
  Sender: FDA-Public Use
  Company Number: None

PATIENT
  Age: 73 Year
  Sex: Female
  Weight: 68.04 kg

DRUGS (3)
  1. METOCLOPRAMIDE [Suspect]
     Indication: GASTRIC DISORDER
     Dosage: 1 4/DAY PO
     Dates: start: 20100115, end: 20130517
  2. METOCLOPRAMIDE [Suspect]
     Indication: ABDOMINAL PAIN UPPER
     Dosage: 1 4/DAY PO
     Dates: start: 20100115, end: 20130517
  3. METOCLOPRAMIDE [Suspect]
     Dosage: 1 4/DAY PO
     Dates: start: 20100115, end: 20130517

REACTIONS (8)
  - Pulse abnormal [None]
  - Blood pressure abnormal [None]
  - Fatigue [None]
  - Amnesia [None]
  - Confusional state [None]
  - Anxiety [None]
  - Heart rate increased [None]
  - Thyroid disorder [None]
